FAERS Safety Report 8776219 (Version 1)
Quarter: 2012Q4

REPORT INFORMATION
  Report Type: 
  Country: US (occurrence: US)
  Receive Date: 20120910
  Receipt Date: 20120910
  Transmission Date: 20130627
  Serious: Yes (Life-Threatening, Hospitalization, Other)
  Sender: FDA-Public Use
  Company Number: US-SHIONOGI, INC-2012000241

PATIENT
  Age: 47 Year
  Sex: Male

DRUGS (1)
  1. TRAMADOL [Suspect]
     Dosage: UNK

REACTIONS (3)
  - Intentional overdose [Recovered/Resolved]
  - Electrocardiogram abnormal [Recovered/Resolved]
  - Suicide attempt [Recovered/Resolved]
